FAERS Safety Report 14092126 (Version 1)
Quarter: 2017Q4

REPORT INFORMATION
  Report Type: Report from Study
  Country: PK (occurrence: PK)
  Receive Date: 20171016
  Receipt Date: 20171016
  Transmission Date: 20180321
  Serious: Yes (Other)
  Sender: FDA-Public Use
  Company Number: PK-ROCHE-2003775

PATIENT

DRUGS (2)
  1. PEG-INTERFERON ALFA 2A [Suspect]
     Active Substance: PEGINTERFERON ALFA-2A
     Indication: CHRONIC HEPATITIS C
     Route: 065
  2. RIBAVIRIN. [Suspect]
     Active Substance: RIBAVIRIN
     Indication: CHRONIC HEPATITIS C
     Route: 065

REACTIONS (8)
  - Infection [Unknown]
  - Hypersensitivity [Unknown]
  - Hepatic failure [Unknown]
  - Mental disorder [Unknown]
  - Coronary artery disease [Unknown]
  - Eye disorder [Unknown]
  - Drug intolerance [Unknown]
  - Acute kidney injury [Unknown]
